FAERS Safety Report 6844005-X (Version None)
Quarter: 2010Q3

REPORT INFORMATION
  Report Type: 
  Country: None (occurrence: None)
  Receive Date: 20100715
  Receipt Date: 20100705
  Transmission Date: 20110219
  Serious: Yes (Other)
  Sender: FDA-Public Use
  Company Number: GB-PFIZER INC-2010066122

PATIENT
  Age: 40 Year
  Sex: Female
  Weight: 63.5 kg

DRUGS (1)
  1. CHAMPIX [Suspect]
     Indication: SMOKING CESSATION THERAPY
     Dosage: 1 MG, 2X/DAY
     Dates: start: 20100506

REACTIONS (6)
  - ASTHENIA [None]
  - BLISTER [None]
  - CONSTIPATION [None]
  - PRURITUS [None]
  - SKIN BURNING SENSATION [None]
  - SKIN EXFOLIATION [None]
